FAERS Safety Report 20925029 (Version 2)
Quarter: 2022Q2

REPORT INFORMATION
  Report Type: Spontaneous
  Country: GB (occurrence: GB)
  Receive Date: 20220607
  Receipt Date: 20220610
  Transmission Date: 20220721
  Serious: Yes (Hospitalization, Other)
  Sender: FDA-Public Use
  Company Number: GB-MYLANLABS-2022M1042073

PATIENT
  Age: 66 Year
  Sex: Male

DRUGS (2)
  1. CLOZARIL [Suspect]
     Active Substance: CLOZAPINE
     Indication: Schizophrenia
     Dosage: UNK
     Route: 048
     Dates: start: 20050526
  2. CLOZARIL [Suspect]
     Active Substance: CLOZAPINE
     Indication: Psychotic disorder

REACTIONS (5)
  - Neutropenia [Unknown]
  - Mesothelioma [Unknown]
  - Neutropenic sepsis [Unknown]
  - Thrombocytopenia [Recovered/Resolved]
  - Neoplasm malignant [Unknown]

NARRATIVE: CASE EVENT DATE: 20220527
